FAERS Safety Report 14269589 (Version 1)
Quarter: 2017Q4

REPORT INFORMATION
  Report Type: Spontaneous
  Country: NO (occurrence: NO)
  Receive Date: 20171211
  Receipt Date: 20171211
  Transmission Date: 20180321
  Serious: Yes (Other)
  Sender: FDA-Public Use
  Company Number: NO-OTSUKA-16016941

PATIENT
  Age: 22 Year
  Sex: Male

DRUGS (3)
  1. ABILIFY [Suspect]
     Active Substance: ARIPIPRAZOLE
     Dosage: UNK
  2. OLANZAPINE. [Suspect]
     Active Substance: OLANZAPINE
     Dosage: UNK
  3. VALLERGAN [Suspect]
     Active Substance: TRIMEPRAZINE
     Dosage: UNK

REACTIONS (1)
  - Pulmonary embolism [Unknown]
